FAERS Safety Report 5054292-9 (Version None)
Quarter: 2006Q3

REPORT INFORMATION
  Report Type: 
  Country: None (occurrence: None)
  Receive Date: 20060713
  Receipt Date: 20060629
  Transmission Date: 20061208
  Serious: Yes (Other)
  Sender: FDA-Public Use
  Company Number: US017858

PATIENT
  Age: 13 Year
  Sex: Female
  Weight: 119.6 kg

DRUGS (4)
  1. MODAFINIL [Suspect]
     Indication: HYPERSOMNIA
     Dosage: 400 MG QD ORAL
     Route: 048
     Dates: start: 20050908, end: 20060203
  2. MODAFINIL [Suspect]
     Indication: NARCOLEPSY
     Dosage: 400 MG QD ORAL
     Route: 048
     Dates: start: 20050908, end: 20060203
  3. MIDOL [Concomitant]
  4. EX-LAX ^EX-LAX INC^ [Concomitant]

REACTIONS (2)
  - DRUG INEFFECTIVE [None]
  - SUICIDAL IDEATION [None]
